FAERS Safety Report 8446603-9 (Version None)
Quarter: 2012Q2

REPORT INFORMATION
  Report Type: 
  Country: None (occurrence: None)
  Receive Date: 20120619
  Receipt Date: 20120607
  Transmission Date: 20120825
  Serious: Yes (Hospitalization)
  Sender: FDA-Public Use
  Company Number: JP-AMGEN-JPNSP2012036152

PATIENT
  Age: 67 Year
  Sex: Female

DRUGS (5)
  1. ENBREL [Suspect]
     Indication: RHEUMATOID ARTHRITIS
     Dosage: 50 MG, WEEKLY
     Route: 058
     Dates: start: 20120228
  2. MAGMITT [Concomitant]
     Dosage: UNK
  3. MUCOSTA [Concomitant]
     Dosage: UNK
  4. SIGMART [Concomitant]
     Dosage: UNK
  5. RISEDRONATE SODIUM [Concomitant]
     Dosage: UNK

REACTIONS (1)
  - HENOCH-SCHONLEIN PURPURA NEPHRITIS [None]
